FAERS Safety Report 16308723 (Version 6)
Quarter: 2022Q1

REPORT INFORMATION
  Report Type: Report from Study
  Country: CN (occurrence: None)
  Receive Date: 20190514
  Receipt Date: 20220102
  Transmission Date: 20220424
  Serious: Yes (Hospitalization)
  Sender: FDA-Public Use
  Company Number: CN-ROCHE-2315445

PATIENT
  Age: 56 Year
  Sex: Male
  Weight: 67 kg

DRUGS (20)
  1. ATEZOLIZUMAB [Suspect]
     Active Substance: ATEZOLIZUMAB
     Indication: Hepatocellular carcinoma
     Dosage: THE DATE OF MOST RECENT DOSE 1200 MG PRIOR TO EVENT ONSET: 17/APR/2019
     Route: 041
     Dates: start: 20190327
  2. BEVACIZUMAB [Suspect]
     Active Substance: BEVACIZUMAB
     Indication: Hepatocellular carcinoma
     Dosage: THE DATE OF MOST RECENT DOSE (1005MG) PRIOR TO EVENT ONSET: 17/APR/2019
     Route: 042
     Dates: start: 20190327
  3. ENTECAVIR [Concomitant]
     Active Substance: ENTECAVIR
     Indication: Hepatitis B
     Dates: start: 201802
  4. DEXAMETHASONE SODIUM PHOSPHATE [Concomitant]
     Active Substance: DEXAMETHASONE SODIUM PHOSPHATE
     Indication: Pyrexia
     Route: 042
     Dates: start: 20190408, end: 20190408
  5. VITAMIN C [Concomitant]
     Active Substance: ASCORBIC ACID
     Dates: start: 20190408, end: 20190408
  6. LEUCOGEN [Concomitant]
     Active Substance: LEUCOGEN
     Indication: Thrombocytopenia
     Dates: start: 20190411, end: 20190723
  7. VITAMIN B6 [Concomitant]
     Active Substance: PYRIDOXINE HYDROCHLORIDE
     Dates: start: 20190408, end: 20190408
  8. THROMBOPOIETIN [Concomitant]
     Active Substance: THROMBOPOIETIN
     Indication: Thrombocytopenia
     Dates: start: 20190607, end: 20190611
  9. THROMBOPOIETIN [Concomitant]
     Active Substance: THROMBOPOIETIN
     Dates: start: 20190612, end: 20190616
  10. ALBUMIN HUMAN [Concomitant]
     Active Substance: ALBUMIN HUMAN
     Dates: start: 20190718, end: 20190722
  11. TRIMEBUTINE MALEATE [Concomitant]
     Active Substance: TRIMEBUTINE MALEATE
     Dates: start: 20190718, end: 20190722
  12. GLUTATHIONE [Concomitant]
     Active Substance: GLUTATHIONE
     Dates: start: 20190718, end: 20190722
  13. OXYCODONE AND ACETAMINOPHEN [Concomitant]
     Active Substance: ACETAMINOPHEN\OXYCODONE HYDROCHLORIDE
     Indication: Abdominal pain
     Dates: start: 20190722, end: 201909
  14. SILYBIN MEGLUMINE [Concomitant]
     Indication: Hepatic function abnormal
     Dates: start: 20190722, end: 201909
  15. FUROSEMIDE [Concomitant]
     Active Substance: FUROSEMIDE
     Indication: Polyuria
     Dates: start: 20190718, end: 201909
  16. FUROSEMIDE [Concomitant]
     Active Substance: FUROSEMIDE
     Indication: Ascites
  17. SPIRONOLACTONE [Concomitant]
     Active Substance: SPIRONOLACTONE
     Indication: Polyuria
     Dates: start: 20190718, end: 201909
  18. SPIRONOLACTONE [Concomitant]
     Active Substance: SPIRONOLACTONE
     Indication: Ascites
  19. OPRELVEKIN [Concomitant]
     Active Substance: OPRELVEKIN
     Dates: start: 20190616, end: 20190616
  20. LENVATINIB [Concomitant]
     Active Substance: LENVATINIB
     Indication: Neoplasm malignant
     Dates: start: 201906, end: 20190709

REACTIONS (1)
  - Abdominal distension [Recovered/Resolved]

NARRATIVE: CASE EVENT DATE: 20190401
